FAERS Safety Report 18368723 (Version 3)
Quarter: 2021Q1

REPORT INFORMATION
  Report Type: Spontaneous
  Country: US (occurrence: US)
  Receive Date: 20201010
  Receipt Date: 20210226
  Transmission Date: 20210419
  Serious: Yes (Other)
  Sender: FDA-Public Use
  Company Number: US-B.I. PHARMACEUTICALS,INC./RIDGEFIELD-2020-BI-053030

PATIENT
  Age: 60 Year
  Sex: Female

DRUGS (1)
  1. JARDIANCE [Suspect]
     Active Substance: EMPAGLIFLOZIN
     Indication: TYPE 2 DIABETES MELLITUS
     Dates: start: 202001

REACTIONS (6)
  - Sepsis [Recovering/Resolving]
  - Fatigue [Recovering/Resolving]
  - Illness [Unknown]
  - Weight increased [Unknown]
  - Skin fissures [Unknown]
  - Lethargy [Unknown]

NARRATIVE: CASE EVENT DATE: 2020
